FAERS Safety Report 4987737-0 (Version None)
Quarter: 2006Q2

REPORT INFORMATION
  Report Type: 
  Country: None (occurrence: None)
  Receive Date: 20060424
  Receipt Date: 20060410
  Transmission Date: 20061013
  Serious: Yes (Death)
  Sender: FDA-Public Use
  Company Number: HQWYE729210APR06

PATIENT
  Age: 68 Year
  Sex: Male

DRUGS (14)
  1. PROTIUM              (PANTOPRAZOLE  DELAYED RELEASE) [Suspect]
     Dosage: 20 MG 1X PER 1 DAY ORAL
     Route: 048
  2. INDORAMIN [Suspect]
     Dosage: 20 MG 1X PER 1 DAY ORAL
     Route: 048
  3. PAMIDRONATE DISODIUM [Suspect]
     Indication: BONE PAIN
     Dosage: INTRAVENOUS
     Route: 042
  4. QUININE SULFATE [Suspect]
     Indication: DYSKINESIA
     Dosage: 200 MG 1X PER 1 DAY ORAL
     Route: 048
  5. THALIDOMIDE            (THALIDOMIDE,) [Suspect]
     Indication: MULTIPLE MYELOMA
     Dosage: 100 MG 1X PER 1 DAY ORAL
     Route: 048
  6. ZOMETA [Suspect]
     Indication: MULTIPLE MYELOMA
     Dosage: 4 MG, INTRAVENOUS
     Route: 042
     Dates: start: 20030612
  7. ATORVASSTATIN [Concomitant]
  8. SENNA [Concomitant]
  9. NYSTATIN [Concomitant]
  10. GABAPENTIN [Concomitant]
  11. DOCUSATE [Concomitant]
  12. ZOPICLONE [Concomitant]
  13. OXYCONTIN           (OXYCODON HYDROCHLORIDE) [Concomitant]
  14. DIAZEPAM [Concomitant]

REACTIONS (5)
  - AGITATION [None]
  - BLOOD POTASSIUM INCREASED [None]
  - BLOOD SODIUM DECREASED [None]
  - DRUG INTERACTION [None]
  - RENAL FAILURE ACUTE [None]
